FAERS Safety Report 20958610 (Version 1)
Quarter: 2022Q2

REPORT INFORMATION
  Report Type: Spontaneous
  Country: CH (occurrence: CH)
  Receive Date: 20220614
  Receipt Date: 20220614
  Transmission Date: 20220721
  Serious: Yes (Hospitalization, Other)
  Sender: FDA-Public Use
  Company Number: CH-SA-SAC20220613000374

PATIENT
  Sex: Female

DRUGS (2)
  1. DUPIXENT [Suspect]
     Active Substance: DUPILUMAB
     Indication: Asthma
     Dosage: 600 MG, 1X
     Route: 058
     Dates: start: 20220520, end: 20220520
  2. DUPIXENT [Suspect]
     Active Substance: DUPILUMAB
     Indication: Dermatitis atopic

REACTIONS (22)
  - Dyspnoea at rest [Recovering/Resolving]
  - Condition aggravated [Recovering/Resolving]
  - Respiratory gas exchange disorder [Recovering/Resolving]
  - Lung disorder [Recovering/Resolving]
  - Neurodermatitis [Recovering/Resolving]
  - Dizziness [Recovered/Resolved]
  - Tachycardia [Recovering/Resolving]
  - Decreased appetite [Recovering/Resolving]
  - Insomnia [Recovering/Resolving]
  - Rhinitis allergic [Recovering/Resolving]
  - Oropharyngeal pain [Recovering/Resolving]
  - Odynophagia [Recovering/Resolving]
  - Rhinorrhoea [Recovering/Resolving]
  - Infection [Recovering/Resolving]
  - C-reactive protein increased [Recovering/Resolving]
  - Inflammation [Recovering/Resolving]
  - Serum sickness [Recovering/Resolving]
  - Pyrexia [Recovering/Resolving]
  - Headache [Recovering/Resolving]
  - Eyelid oedema [Recovering/Resolving]
  - Erythema [Recovering/Resolving]
  - Face oedema [Recovering/Resolving]

NARRATIVE: CASE EVENT DATE: 20220501
